FAERS Safety Report 17157832 (Version 1)
Quarter: 2019Q4

REPORT INFORMATION
  Report Type: Spontaneous
  Country: DE (occurrence: DE)
  Receive Date: 20191216
  Receipt Date: 20191216
  Transmission Date: 20200122
  Serious: Yes (Other)
  Sender: FDA-Public Use
  Company Number: DE-ROCHE-2492201

PATIENT
  Age: 29 Year
  Sex: Female

DRUGS (13)
  1. EPIRUBICIN [Suspect]
     Active Substance: EPIRUBICIN
     Dosage: 4 CYCLES
     Route: 065
     Dates: start: 201510, end: 201604
  2. CARBOPLATIN. [Suspect]
     Active Substance: CARBOPLATIN
     Indication: BREAST CANCER
     Route: 065
  3. AVASTIN [Suspect]
     Active Substance: BEVACIZUMAB
     Indication: BREAST CANCER
     Route: 065
     Dates: start: 201709, end: 201803
  4. PACLITAXEL. [Suspect]
     Active Substance: PACLITAXEL
     Indication: BREAST CANCER
     Dosage: 12 CYCLES
     Route: 065
     Dates: start: 201510, end: 201604
  5. CARBOPLATIN. [Suspect]
     Active Substance: CARBOPLATIN
     Dosage: 3 CYCLES
     Route: 065
     Dates: start: 201510, end: 201604
  6. ENDOXAN [CYCLOPHOSPHAMIDE] [Suspect]
     Active Substance: CYCLOPHOSPHAMIDE
     Route: 065
  7. ERIBULIN [Suspect]
     Active Substance: ERIBULIN
     Indication: BREAST CANCER
     Route: 065
     Dates: start: 201903
  8. OLAPARIB. [Suspect]
     Active Substance: OLAPARIB
     Indication: BREAST CANCER
     Route: 065
  9. EPIRUBICIN [Suspect]
     Active Substance: EPIRUBICIN
     Indication: BREAST CANCER
     Route: 065
  10. ENDOXAN [CYCLOPHOSPHAMIDE] [Suspect]
     Active Substance: CYCLOPHOSPHAMIDE
     Indication: BREAST CANCER
     Dosage: 4 CYCLES
     Route: 065
     Dates: start: 201510, end: 201604
  11. CAPECITABINE. [Suspect]
     Active Substance: CAPECITABINE
     Indication: BREAST CANCER
     Route: 048
     Dates: start: 201709, end: 201803
  12. PACLITAXEL. [Suspect]
     Active Substance: PACLITAXEL
     Route: 065
  13. OLAPARIB. [Suspect]
     Active Substance: OLAPARIB
     Route: 065
     Dates: start: 201809, end: 201903

REACTIONS (9)
  - Anaemia [Unknown]
  - Metastases to lymph nodes [Unknown]
  - Therapy partial responder [Unknown]
  - Bone marrow toxicity [Unknown]
  - Toxicity to various agents [Unknown]
  - Disease recurrence [Unknown]
  - Metastasis [Unknown]
  - Malignant neoplasm progression [Unknown]
  - Metastases to lung [Unknown]

NARRATIVE: CASE EVENT DATE: 201611
